FAERS Safety Report 21437289 (Version 1)
Quarter: 2022Q4

REPORT INFORMATION
  Report Type: Report from Study
  Country: US (occurrence: US)
  Receive Date: 20221010
  Receipt Date: 20221010
  Transmission Date: 20230113
  Serious: No
  Sender: FDA-Public Use
  Company Number: US-ABBVIE-4144443

PATIENT
  Sex: Male
  Weight: 113.39 kg

DRUGS (10)
  1. SKYRIZI [Suspect]
     Active Substance: RISANKIZUMAB-RZAA
     Indication: Psoriasis
     Route: 058
     Dates: start: 20210205
  2. PANTOPRAZOLE SODIUM 40 MG TABLET DR [Concomitant]
     Indication: Product used for unknown indication
  3. ARIPIPRAZOLE [Concomitant]
     Active Substance: ARIPIPRAZOLE
     Indication: Product used for unknown indication
  4. TEMAZEPAM 30 MG CAPSULE [Concomitant]
     Indication: Product used for unknown indication
  5. OXCARBAZEPINE 300 MG TABLET [Concomitant]
     Indication: Product used for unknown indication
  6. AMLODIPINE BESYLATE [Concomitant]
     Active Substance: AMLODIPINE BESYLATE
     Indication: Product used for unknown indication
  7. CITALOPRAM HBR 40 MG TABLET [Concomitant]
     Indication: Product used for unknown indication
  8. LISINOPRIL [Concomitant]
     Active Substance: LISINOPRIL
     Indication: Product used for unknown indication
  9. MONTELUKAST SODIUM 10 MG TABLET [Concomitant]
     Indication: Product used for unknown indication
  10. MIRTAZAPINE 15 MG TABLE [Concomitant]
     Indication: Product used for unknown indication

REACTIONS (2)
  - Cough [Recovering/Resolving]
  - Respiratory disorder [Recovering/Resolving]

NARRATIVE: CASE EVENT DATE: 20220101
